FAERS Safety Report 9413406 (Version 1)
Quarter: 2013Q3

REPORT INFORMATION
  Report Type: Spontaneous
  Country: US (occurrence: US)
  Receive Date: 20130705
  Receipt Date: 20130705
  Transmission Date: 20140515
  Serious: Yes (Other)
  Sender: FDA-Public Use
  Company Number: ENTC2011-0385

PATIENT
  Age: 84 Year
  Sex: Female

DRUGS (9)
  1. STALEVO [Suspect]
     Indication: PARKINSON^S DISEASE
     Dosage: 100 MG DOSAGE TAKEN 6X PER DAY.
     Route: 048
     Dates: start: 20111017
  2. SINEMET [Suspect]
     Dates: start: 201302
  3. PROPRANOLOL (PROPRANOLOL) [Concomitant]
  4. SELEGILINE (SELEGILINE) [Concomitant]
  5. REQUIP XL (TABLET, PROLONGED-RELEASE)(ROPINIROLE HYDROCHLORIDE) [Concomitant]
  6. HYDROCHLOROTHIAZIDE (HYDROCHLOROTHIAZIDE) [Concomitant]
  7. ALLODIPINE (AMLODIPINE) [Concomitant]
  8. CALCIUM WITH VITAMIN D (COLECALCIFEROL) [Concomitant]
  9. ADVIL (IBUPROFEN) [Concomitant]

REACTIONS (10)
  - Freezing phenomenon [None]
  - Mobility decreased [None]
  - Hallucination, visual [None]
  - Drug ineffective [None]
  - Chorea [None]
  - Posture abnormal [None]
  - Parkinson^s disease [None]
  - Wrong technique in drug usage process [None]
  - Dysphagia [None]
  - Product quality issue [None]
